FAERS Safety Report 8089670-7 (Version None)
Quarter: 2012Q1

REPORT INFORMATION
  Report Type: 
  Country: None (occurrence: None)
  Receive Date: 20120128
  Receipt Date: 20110726
  Transmission Date: 20120608
  Serious: Yes (Other)
  Sender: FDA-Public Use
  Company Number: US-ABBOTT-11P-163-0730116-00

PATIENT
  Sex: Female
  Weight: 68.1 kg

DRUGS (20)
  1. IMITREX [Concomitant]
     Indication: MIGRAINE
  2. SIMVASTATIN [Concomitant]
     Indication: BLOOD CHOLESTEROL INCREASED
  3. PREMARIN [Concomitant]
     Indication: VULVOVAGINAL DRYNESS
  4. PREDNISONE TAB [Concomitant]
     Indication: RHEUMATOID ARTHRITIS
  5. PREDNISONE TAB [Concomitant]
  6. PERCOCET [Concomitant]
     Indication: PRODUCT USED FOR UNKNOWN INDICATION
  7. VITAMIN D [Concomitant]
     Indication: VITAMIN SUPPLEMENTATION
  8. MULTI-VITAMINS [Concomitant]
     Indication: VITAMIN SUPPLEMENTATION
  9. LEUCOVORIN CALCIUM [Concomitant]
     Indication: ANAEMIA
  10. DICYCLOMINE [Concomitant]
     Indication: PRODUCT USED FOR UNKNOWN INDICATION
  11. BUTALBITAL ACETAMINOPHEN AND CAFFEINE [Concomitant]
     Indication: MIGRAINE
  12. HUMIRA [Suspect]
     Indication: RHEUMATOID ARTHRITIS
     Dates: start: 20070101
  13. HUMIRA [Suspect]
  14. METHOTREXATE [Concomitant]
     Indication: RHEUMATOID ARTHRITIS
     Dosage: 6 PILLS WEEKLY
  15. FAMCICLOVIR [Concomitant]
     Indication: GENITAL HERPES
  16. FLEXERIL [Concomitant]
     Indication: MUSCLE TIGHTNESS
  17. LEUCOVORIN CALCIUM [Concomitant]
     Indication: OSTEOPOROSIS
  18. TRAZODONE HCL [Concomitant]
     Indication: INSOMNIA
     Dosage: 1/4 TABLET PRN
  19. FISH OIL [Concomitant]
     Indication: SUPPLEMENTATION THERAPY
  20. FLUTICASONE PROPIONATE [Concomitant]
     Indication: HYPERSENSITIVITY
     Dosage: NASAL SPRAY 2 PUFFS PER NOSTRIL EVERY NIGHT

REACTIONS (8)
  - BRONCHITIS [None]
  - PURPURA [None]
  - BASAL CELL CARCINOMA [None]
  - ARTHRITIS [None]
  - CHEST DISCOMFORT [None]
  - VULVOVAGINAL MYCOTIC INFECTION [None]
  - SQUAMOUS CELL CARCINOMA [None]
  - SKIN BURNING SENSATION [None]
